FAERS Safety Report 7409403-4 (Version None)
Quarter: 2011Q2

REPORT INFORMATION
  Report Type: 
  Country: None (occurrence: None)
  Receive Date: 20110412
  Receipt Date: 20100628
  Transmission Date: 20111010
  Serious: Yes (Hospitalization, Other)
  Sender: FDA-Public Use
  Company Number: US-BAYER-201026313NA

PATIENT
  Age: 51 Year
  Sex: Female
  Weight: 130.61 kg

DRUGS (17)
  1. ZAROXOLYN [Concomitant]
     Dosage: 5 MG, UNK
     Route: 048
  2. CARDIOPLEGIA [Concomitant]
     Dosage: UNK
     Dates: start: 20051209, end: 20051209
  3. TRASYLOL [Suspect]
     Dosage: UNK
  4. ACETYLSALICYLIC ACID SRT [Concomitant]
     Dosage: 81
     Route: 048
     Dates: start: 20051109
  5. COREG [Concomitant]
     Dosage: 25 MG, UNK
     Route: 048
     Dates: start: 20051109
  6. LASIX [Concomitant]
     Dosage: 40 MG, UNK
     Route: 048
     Dates: start: 20050518
  7. ZOCOR [Concomitant]
     Dosage: 40 MG, UNK
     Route: 048
     Dates: start: 20051109
  8. PROTAMINE SULFATE [Concomitant]
     Dosage: 450
     Dates: start: 20051209, end: 20051209
  9. MIDAZOLAM [Concomitant]
     Dosage: IV DRIP
     Route: 042
     Dates: start: 20051209, end: 20051209
  10. NEURONTIN [Concomitant]
     Dosage: 300 MG, BID
     Route: 048
  11. NORVASC [Concomitant]
     Dosage: 10
     Route: 048
     Dates: start: 20000106
  12. PANCURONIUM BROMIDE [Concomitant]
     Dosage: 15 MG, UNK
     Route: 042
     Dates: start: 20051209, end: 20051209
  13. INSULIN [Concomitant]
     Dosage: 5 UNITS / HR
     Route: 042
     Dates: start: 20051209
  14. TRASYLOL [Suspect]
     Indication: CORONARY ARTERY BYPASS
     Dosage: 1 ML TEST DOSE, 200CC BOLUS, 50 CC/HR CONTINUOUS INFUSION
     Route: 042
     Dates: start: 20051209, end: 20051209
  15. CLONIDINE [Concomitant]
     Dosage: 0.2 MG, BID
     Route: 048
     Dates: start: 20051109
  16. COZAAR [Concomitant]
     Dosage: 100 MG, BID
     Route: 048
     Dates: start: 20051026
  17. HEPARIN [Concomitant]
     Dosage: 750 U, UNK
     Dates: start: 20051209

REACTIONS (9)
  - RENAL FAILURE [None]
  - PAIN [None]
  - RENAL INJURY [None]
  - FEAR [None]
  - RENAL IMPAIRMENT [None]
  - EMOTIONAL DISORDER [None]
  - STRESS [None]
  - EMOTIONAL DISTRESS [None]
  - ANXIETY [None]
